FAERS Safety Report 12209244 (Version 3)
Quarter: 2016Q3

REPORT INFORMATION
  Report Type: Spontaneous
  Country: JP (occurrence: JP)
  Receive Date: 20160324
  Receipt Date: 20160711
  Transmission Date: 20161109
  Serious: Yes (Death)
  Sender: FDA-Public Use
  Company Number: JP-MALLINCKRODT-T201601051

PATIENT
  Age: 64 Year
  Sex: Male

DRUGS (17)
  1. METHADONE [Suspect]
     Active Substance: METHADONE HYDROCHLORIDE
     Indication: CANCER PAIN
     Dosage: 5MG TOTAL DAILY DOSE
     Route: 048
     Dates: start: 20151222, end: 20160218
  2. BETAMETHASONE. [Concomitant]
     Active Substance: BETAMETHASONE
     Dosage: 1MG
     Route: 048
     Dates: end: 20160217
  3. QUETIAPINE. [Concomitant]
     Active Substance: QUETIAPINE
     Dosage: 50MG
     Route: 048
     Dates: end: 20160217
  4. BELSOMRA [Concomitant]
     Active Substance: SUVOREXANT
     Dosage: 15MG
     Route: 048
     Dates: start: 20160113, end: 20160217
  5. ROPION [Concomitant]
     Active Substance: FLURBIPROFEN AXETIL
     Indication: ANALGESIC THERAPY
     Dosage: 100MG
     Route: 051
     Dates: start: 20160218, end: 20160220
  6. HEPARIN NA LOCK [Concomitant]
     Active Substance: HEPARIN SODIUM
     Dosage: 1000 DF
     Route: 051
     Dates: start: 20160218, end: 20160220
  7. DEXART [Concomitant]
     Active Substance: DEXAMETHASONE SODIUM PHOSPHATE
     Dosage: 1.65MG
     Route: 051
     Dates: start: 20160218, end: 20160220
  8. PHENOBAL [Concomitant]
     Active Substance: PHENOBARBITAL
     Dosage: 240MG
     Route: 051
     Dates: start: 20160218, end: 20160220
  9. SODIUM VALPROATE [Concomitant]
     Active Substance: VALPROATE SODIUM
     Dosage: 400 MG
     Route: 048
     Dates: end: 20160217
  10. RISPERIDONE. [Concomitant]
     Active Substance: RISPERIDONE
     Dosage: 2MG
     Route: 048
     Dates: start: 20160113, end: 20160217
  11. HIRNAMIN [Concomitant]
     Active Substance: PHENOTHIAZINE
     Dosage: 5MG
     Route: 048
     Dates: start: 20160106, end: 20160112
  12. OMEPRAL [Concomitant]
     Active Substance: OMEPRAZOLE
     Dosage: 20MG
     Route: 051
     Dates: start: 20160218, end: 20160220
  13. CALONAL [Concomitant]
     Active Substance: ACETAMINOPHEN
     Indication: ANALGESIC THERAPY
     Dosage: 2400MG
     Route: 048
     Dates: end: 20160217
  14. CALONAL [Concomitant]
     Active Substance: ACETAMINOPHEN
     Dosage: 600 MG PRN
     Route: 048
     Dates: start: 20151221
  15. CYTOTEC [Concomitant]
     Active Substance: MISOPROSTOL
     Dosage: 600 MCG
     Route: 048
     Dates: end: 20160217
  16. MAGMITT [Concomitant]
     Active Substance: MAGNESIUM OXIDE
     Dosage: 990 MG
     Route: 048
     Dates: end: 20160217
  17. ISOTONIC SODIUM CHLORIDE SOLUTION [Concomitant]
     Active Substance: SODIUM CHLORIDE
     Dosage: 240ML
     Route: 051
     Dates: start: 20160218, end: 20160220

REACTIONS (3)
  - Rectal cancer [Fatal]
  - Insomnia [Recovering/Resolving]
  - Irritability [Recovered/Resolved]

NARRATIVE: CASE EVENT DATE: 20160106
